FAERS Safety Report 9349825 (Version 1)
Quarter: 2013Q2

REPORT INFORMATION
  Report Type: Spontaneous
  Country: US (occurrence: None)
  Receive Date: 20130611
  Receipt Date: 20130611
  Transmission Date: 20140414
  Serious: Yes (Other)
  Sender: FDA-Public Use
  Company Number: 2013P1006751

PATIENT
  Age: 58 Year
  Sex: Female

DRUGS (12)
  1. CLONIDINE [Suspect]
     Indication: HYPERTENSION
  2. TAPENTADOL [Suspect]
     Route: 048
  3. TRIAMTERENE/HYDROCHLORTHIAZIDE [Concomitant]
  4. VALSARTAN [Concomitant]
  5. CELECOXIB [Concomitant]
  6. CARBOPLATIN [Concomitant]
  7. PLACLITAXEL [Concomitant]
  8. DEXAMETHASONE [Concomitant]
  9. DIPHENHYDRAMINE [Concomitant]
  10. RANITDINE (ZANTAC) [Concomitant]
  11. PALENOSETRON [Concomitant]
  12. CALCIUM CITRATE WITH VITAMINS D [Concomitant]

REACTIONS (5)
  - Hypertension [None]
  - Neuropathy peripheral [None]
  - Heart rate increased [None]
  - Feeling abnormal [None]
  - Drug interaction [None]
